FAERS Safety Report 6964720-7 (Version None)
Quarter: 2010Q3

REPORT INFORMATION
  Report Type: 
  Country: None (occurrence: None)
  Receive Date: 20100903
  Receipt Date: 20100823
  Transmission Date: 20110219
  Serious: Yes (Other)
  Sender: FDA-Public Use
  Company Number: PHHY2010SE39916

PATIENT
  Sex: Male

DRUGS (1)
  1. TEGRETOL [Suspect]
     Indication: BRAIN NEOPLASM
     Dosage: UNK,UNK
     Dates: start: 20020111, end: 20020214

REACTIONS (8)
  - ATRIAL FIBRILLATION [None]
  - CHILLS [None]
  - EPILEPSY [None]
  - GENERAL PHYSICAL HEALTH DETERIORATION [None]
  - LIVER FUNCTION TEST ABNORMAL [None]
  - NAUSEA [None]
  - PULMONARY EMBOLISM [None]
  - PYREXIA [None]
